FAERS Safety Report 7296319-X (Version None)
Quarter: 2011Q1

REPORT INFORMATION
  Report Type: 
  Country: None (occurrence: None)
  Receive Date: 20110216
  Receipt Date: 20110203
  Transmission Date: 20110831
  Serious: Yes (Other)
  Sender: FDA-Public Use
  Company Number: JP-BAYER-200812632BYL

PATIENT
  Sex: Male
  Weight: 68.85 kg

DRUGS (8)
  1. MAGNESIUM OXIDE [Concomitant]
     Dosage: 3 G (DAILY DOSE), , ORAL
     Route: 048
     Dates: start: 20081023, end: 20081031
  2. NEXAVAR [Suspect]
     Dosage: 400 MG (DAILY DOSE), , ORAL
     Route: 048
     Dates: start: 20081117, end: 20081130
  3. NEXAVAR [Suspect]
     Dosage: 400 MG (DAILY DOSE), , ORAL
     Route: 048
     Dates: start: 20090809
  4. NEXAVAR [Suspect]
     Indication: RENAL CELL CARCINOMA
     Route: 048
     Dates: start: 20081015, end: 20081116
  5. NEXAVAR [Suspect]
     Dosage: 200 MG (DAILY DOSE), , ORAL
     Route: 048
     Dates: start: 20090730, end: 20090808
  6. PARIET [Concomitant]
     Dosage: 10 MG (DAILY DOSE), , ORAL
     Route: 048
     Dates: start: 20081020, end: 20100312
  7. NEXAVAR [Suspect]
     Dosage: 200 MG (DAILY DOSE), , ORAL
     Route: 048
     Dates: start: 20081201, end: 20081215
  8. NEXAVAR [Suspect]
     Dosage: 400 MG (DAILY DOSE), , ORAL
     Route: 048
     Dates: start: 20081216, end: 20090729

REACTIONS (7)
  - HYPERTENSION [None]
  - LIPASE INCREASED [None]
  - BLOOD AMYLASE INCREASED [None]
  - HEPATIC FUNCTION ABNORMAL [None]
  - DRUG ERUPTION [None]
  - PYREXIA [None]
  - HICCUPS [None]
